FAERS Safety Report 23865753 (Version 3)
Quarter: 2024Q2

REPORT INFORMATION
  Report Type: Spontaneous
  Country: IT (occurrence: IT)
  Receive Date: 20240517
  Receipt Date: 20240525
  Transmission Date: 20240716
  Serious: Yes (Life-Threatening, Hospitalization, Disabling, Other)
  Sender: FDA-Public Use
  Company Number: IT-INCYTE CORPORATION-2024IN003354

PATIENT
  Age: 67 Year
  Sex: Male

DRUGS (2)
  1. ICLUSIG [Suspect]
     Active Substance: PONATINIB\PONATINIB HYDROCHLORIDE
     Indication: Philadelphia positive chronic myeloid leukaemia
     Dosage: 30 MILLIGRAM, QD
     Route: 065
     Dates: start: 20170503, end: 20201007
  2. ICLUSIG [Suspect]
     Active Substance: PONATINIB\PONATINIB HYDROCHLORIDE
     Dosage: 15 MILLIGRAM, QD
     Route: 048
     Dates: start: 20201008, end: 20240201

REACTIONS (8)
  - Pericardial effusion [Recovered/Resolved]
  - Cardiac tamponade [Recovered/Resolved]
  - Pericarditis [Unknown]
  - Coronary artery stenosis [Unknown]
  - Hypercholesterolaemia [Unknown]
  - Benign prostatic hyperplasia [Unknown]
  - Arteriosclerosis [Unknown]
  - Hypertension [Unknown]

NARRATIVE: CASE EVENT DATE: 20240201
